FAERS Safety Report 8238290-X (Version None)
Quarter: 2012Q1

REPORT INFORMATION
  Report Type: 
  Country: None (occurrence: None)
  Receive Date: 20120327
  Receipt Date: 20120315
  Transmission Date: 20120608
  Serious: Yes (Death)
  Sender: FDA-Public Use
  Company Number: BA-ROCHE-1051740

PATIENT

DRUGS (1)
  1. ALTEPLASE [Suspect]
     Indication: ISCHAEMIC STROKE
     Dosage: 0.9 MG/KG, MAX. 90 MG, 10% GIVEN AS BOLUS, FOLLOWED BY 60 MIN INFUSION (NR)
     Route: 042

REACTIONS (1)
  - CEREBRAL HAEMATOMA [None]
